FAERS Safety Report 6588557-6 (Version None)
Quarter: 2010Q1

REPORT INFORMATION
  Report Type: 
  Country: None (occurrence: None)
  Receive Date: 20100218
  Receipt Date: 20091106
  Transmission Date: 20100710
  Serious: No
  Sender: FDA-Public Use
  Company Number: US-ALLERGAN-0914107US

PATIENT
  Age: 65 Year
  Sex: Female
  Weight: 62.585 kg

DRUGS (7)
  1. BOTOX [Suspect]
     Indication: TORTICOLLIS
     Dosage: UNK
     Route: 030
     Dates: start: 20081126, end: 20081126
  2. BOTOX [Suspect]
     Dosage: 280 UNITS, SINGLE
     Route: 030
     Dates: start: 20090818, end: 20090818
  3. BOTOX [Suspect]
     Indication: DYSTONIA
     Dosage: UNK
     Route: 030
     Dates: start: 20080902, end: 20080902
  4. BOTOX [Suspect]
     Indication: TREMOR
     Dosage: UNK
     Route: 030
     Dates: start: 20060101
  5. THYROID MEDICATION [Concomitant]
     Indication: HYPOTHYROIDISM
  6. KLONOPIN [Concomitant]
     Indication: DYSTONIA
     Route: 048
  7. KLONOPIN [Concomitant]
     Indication: TREMOR

REACTIONS (7)
  - HEADACHE [None]
  - MUSCLE TIGHTNESS [None]
  - THERAPEUTIC RESPONSE DECREASED [None]
  - THERAPEUTIC RESPONSE UNEXPECTED [None]
  - THYROID FUNCTION TEST ABNORMAL [None]
  - URTICARIA [None]
  - WEIGHT INCREASED [None]
